FAERS Safety Report 6211556-0 (Version None)
Quarter: 2009Q2

REPORT INFORMATION
  Report Type: 
  Country: None (occurrence: None)
  Receive Date: 20090522
  Receipt Date: 20090406
  Transmission Date: 20091009
  Serious: No
  Sender: FDA-Public Use
  Company Number: 8044597

PATIENT
  Age: 32 Year
  Sex: Male
  Weight: 68 kg

DRUGS (5)
  1. CIMZIA [Suspect]
     Indication: CROHN'S DISEASE
     Dosage: 400 MG SC
     Route: 058
     Dates: start: 20090324
  2. AZATHIOPRINE [Concomitant]
  3. EXCEDRIN (MIGRAINE) [Concomitant]
  4. PREDNISONE [Concomitant]
  5. VALTREX [Concomitant]

REACTIONS (1)
  - INJECTION SITE DISCOLOURATION [None]
